FAERS Safety Report 24750652 (Version 1)
Quarter: 2024Q4

REPORT INFORMATION
  Report Type: Spontaneous
  Country: DE (occurrence: DE)
  Receive Date: 20241218
  Receipt Date: 20241218
  Transmission Date: 20250115
  Serious: Yes (Congenital Anomaly, Other)
  Sender: CIPLA
  Company Number: DE-DCGMA-24204417

PATIENT

DRUGS (1)
  1. RIVAROXABAN [Suspect]
     Active Substance: RIVAROXABAN
     Indication: Thrombosis prophylaxis
     Dosage: 10 MILLIGRAM, QD (10 MG EVERY 1 DAY)
     Route: 048

REACTIONS (2)
  - Foetal malformation [Unknown]
  - Maternal exposure during pregnancy [Unknown]
